FAERS Safety Report 6837770-9 (Version None)
Quarter: 2010Q3

REPORT INFORMATION
  Report Type: 
  Country: None (occurrence: None)
  Receive Date: 20100713
  Receipt Date: 20070517
  Transmission Date: 20110219
  Serious: No
  Sender: FDA-Public Use
  Company Number: US-PFIZER INC-2007041735

PATIENT
  Sex: Female

DRUGS (5)
  1. CHANTIX [Suspect]
     Indication: SMOKING CESSATION THERAPY
     Dates: start: 20070501
  2. VALIUM [Concomitant]
  3. ANALGESICS [Concomitant]
  4. OTHER RESPIRATORY SYSTEM PRODUCTS [Concomitant]
  5. OXYGEN [Concomitant]

REACTIONS (4)
  - ABDOMINAL DISCOMFORT [None]
  - ABNORMAL DREAMS [None]
  - DECREASED APPETITE [None]
  - MENTAL DISORDER [None]
